FAERS Safety Report 7940093-8 (Version None)
Quarter: 2011Q4

REPORT INFORMATION
  Report Type: 
  Country: None (occurrence: None)
  Receive Date: 20111125
  Receipt Date: 20111121
  Transmission Date: 20120403
  Serious: Yes (Death, Hospitalization)
  Sender: FDA-Public Use
  Company Number: PHHY2011LB101901

PATIENT
  Age: 14 Year
  Sex: Female

DRUGS (2)
  1. STEROIDS NOS [Concomitant]
  2. CYCLOSPORINE [Suspect]
     Indication: LIVER TRANSPLANT

REACTIONS (13)
  - ARTERIOSCLEROSIS CORONARY ARTERY [None]
  - MYOCARDIAL ISCHAEMIA [None]
  - CARDIAC MURMUR [None]
  - ANGINA PECTORIS [None]
  - VASCULAR RESISTANCE SYSTEMIC DECREASED [None]
  - SUPRAVALVULAR AORTIC STENOSIS [None]
  - ARRHYTHMIA [None]
  - CORONARY OSTIAL STENOSIS [None]
  - TACHYCARDIA [None]
  - HYPOTENSION [None]
  - PYREXIA [None]
  - SEPTIC SHOCK [None]
  - PAIN [None]
